FAERS Safety Report 13179346 (Version 3)
Quarter: 2017Q2

REPORT INFORMATION
  Report Type: Spontaneous
  Country: US (occurrence: US)
  Receive Date: 20170202
  Receipt Date: 20170425
  Transmission Date: 20170830
  Serious: Yes (Other)
  Sender: FDA-Public Use
  Company Number: US-PFIZER INC-2017038567

PATIENT
  Age: 66 Year
  Sex: Male
  Weight: 72.56 kg

DRUGS (2)
  1. AZULFIDINE [Suspect]
     Active Substance: SULFASALAZINE
     Indication: COLITIS ULCERATIVE
     Dosage: 2000 MG, 2 PILLS, 2X/DAY (2 WKS)
     Route: 048
     Dates: start: 20170102
  2. AZULFIDINE [Suspect]
     Active Substance: SULFASALAZINE
     Dosage: 4 PILLS, 2X/DAY
     Route: 048
     Dates: end: 20170110

REACTIONS (9)
  - Eye swelling [Not Recovered/Not Resolved]
  - Swelling face [Not Recovered/Not Resolved]
  - Swollen tongue [Not Recovered/Not Resolved]
  - Rash [Recovering/Resolving]
  - Mouth swelling [Not Recovered/Not Resolved]
  - Pruritus [Not Recovered/Not Resolved]
  - Hyperaesthesia [Not Recovered/Not Resolved]
  - Muscle tightness [Not Recovered/Not Resolved]
  - Myalgia [Not Recovered/Not Resolved]

NARRATIVE: CASE EVENT DATE: 20170109
